FAERS Safety Report 7724482-2 (Version None)
Quarter: 2011Q3

REPORT INFORMATION
  Report Type: 
  Country: None (occurrence: None)
  Receive Date: 20110901
  Receipt Date: 20110825
  Transmission Date: 20111222
  Serious: Yes (Hospitalization)
  Sender: FDA-Public Use
  Company Number: US-GLAXOSMITHKLINE-A0943029A

PATIENT
  Age: 57 Year
  Sex: Male
  Weight: 86.4 kg

DRUGS (6)
  1. COREG [Suspect]
     Indication: CARDIAC DISORDER
     Dosage: 25MG TWICE PER DAY
     Route: 048
     Dates: start: 20090101
  2. ALBUTEROL SULFATE AUTOHALER [Concomitant]
     Route: 055
  3. PLAVIX [Suspect]
     Indication: CARDIAC DISORDER
     Dosage: 75MGD PER DAY
     Route: 048
     Dates: start: 20091001
  4. NEURONTIN [Suspect]
     Indication: MUSCULAR WEAKNESS
     Dosage: 600MG TWICE PER DAY
     Route: 048
     Dates: start: 20080101
  5. GLUCOVANCE [Concomitant]
  6. LIPITOR [Suspect]
     Indication: CARDIAC DISORDER
     Dosage: 10MGD PER DAY
     Route: 048
     Dates: start: 20091001

REACTIONS (2)
  - CARDIAC DISORDER [None]
  - PARAESTHESIA [None]
